FAERS Safety Report 8431015-4 (Version None)
Quarter: 2012Q2

REPORT INFORMATION
  Report Type: 
  Country: None (occurrence: None)
  Receive Date: 20120612
  Receipt Date: 20120608
  Transmission Date: 20120825
  Serious: Yes (Life-Threatening, Other)
  Sender: FDA-Public Use
  Company Number: GB-B.I. PHARMACEUTICALS,INC./RIDGEFIELD-2012-UK-00756UK

PATIENT
  Age: 91 Year
  Sex: Female

DRUGS (13)
  1. FERROUS FUMARATE [Concomitant]
  2. OMEPRAZOLE [Concomitant]
  3. ZOPICLONE [Concomitant]
  4. FUROSEMIDE [Concomitant]
  5. IRBESARTAN [Concomitant]
  6. DOMPERIDONE [Concomitant]
  7. FELODIPINE [Concomitant]
  8. MAXEPA [Concomitant]
  9. TRAJENTA [Suspect]
     Dosage: 5 MG
     Route: 048
     Dates: start: 20120524
  10. ASPIRIN [Suspect]
     Indication: CARDIOVASCULAR DISORDER
     Dosage: 75 MG
     Route: 048
     Dates: start: 20120413
  11. SIMVASTATIN [Concomitant]
  12. BISOPROLOL FUMARATE [Concomitant]
  13. CALCICHEW D3 [Concomitant]

REACTIONS (2)
  - GASTROINTESTINAL HAEMORRHAGE [None]
  - CONTUSION [None]
